FAERS Safety Report 10632220 (Version 2)
Quarter: 2015Q1

REPORT INFORMATION
  Report Type: Spontaneous
  Country: US (occurrence: US)
  Receive Date: 20141205
  Receipt Date: 20150203
  Transmission Date: 20150720
  Serious: No
  Sender: FDA-Public Use
  Company Number: US-BRISTOL-MYERS SQUIBB COMPANY-21598651

PATIENT
  Sex: Male

DRUGS (3)
  1. BUPROPION [Concomitant]
     Active Substance: BUPROPION
  2. ABILIFY [Suspect]
     Active Substance: ARIPIPRAZOLE
     Indication: SCHIZOPHRENIA
     Dosage: RESTARTED 2010
     Route: 048
  3. ZYPREXA [Concomitant]
     Active Substance: OLANZAPINE

REACTIONS (1)
  - White blood cell count decreased [Recovered/Resolved]
